FAERS Safety Report 7562201-3 (Version None)
Quarter: 2011Q2

REPORT INFORMATION
  Report Type: 
  Country: None (occurrence: None)
  Receive Date: 20110620
  Receipt Date: 20110620
  Transmission Date: 20111010
  Serious: Yes (Death)
  Sender: FDA-Public Use
  Company Number: None

PATIENT
  Age: 61 Year
  Sex: Male

DRUGS (3)
  1. REVLIMID [Suspect]
     Indication: MULTIPLE MYELOMA
     Dosage: 5MG QD ORALLY
     Route: 048
     Dates: start: 20081001, end: 20081201
  2. REVLIMID [Suspect]
     Indication: MULTIPLE MYELOMA
     Dosage: 5MG QD ORALLY
     Route: 048
     Dates: start: 20100101
  3. REVLIMID [Suspect]
     Indication: MULTIPLE MYELOMA
     Dosage: 5MG QD ORALLY
     Route: 048
     Dates: start: 20091101, end: 20091201

REACTIONS (2)
  - MULTI-ORGAN FAILURE [None]
  - DYSPNOEA [None]
